FAERS Safety Report 8448243-4 (Version None)
Quarter: 2012Q2

REPORT INFORMATION
  Report Type: 
  Country: None (occurrence: None)
  Receive Date: 20120619
  Receipt Date: 20120605
  Transmission Date: 20120825
  Serious: No
  Sender: FDA-Public Use
  Company Number: US-ASTRAZENECA-2012SE37844

PATIENT
  Age: 75 Year
  Sex: Male

DRUGS (3)
  1. BLOOD PRESURRE MEDICATIONS [Concomitant]
  2. OTHER MEDICATIONS [Suspect]
  3. SYMBICORT [Suspect]
     Dosage: 160 BID
     Route: 055
     Dates: start: 20100101

REACTIONS (2)
  - DRUG PRESCRIBING ERROR [None]
  - PULMONARY FUNCTION TEST DECREASED [None]
